FAERS Safety Report 6692795-1 (Version None)
Quarter: 2010Q2

REPORT INFORMATION
  Report Type: 
  Country: None (occurrence: None)
  Receive Date: 20100419
  Receipt Date: 20091117
  Transmission Date: 20101027
  Serious: Yes (Other)
  Sender: FDA-Public Use
  Company Number: LMI-2009-00333

PATIENT
  Age: 57 Year
  Sex: Female
  Weight: 90.2658 kg

DRUGS (5)
  1. CARDIOLITE [Suspect]
     Indication: CARDIAC STRESS TEST
     Dosage: 2 IN 1 D
     Dates: start: 20091117, end: 20091117
  2. CARDIOLITE [Suspect]
     Indication: CHEST PAIN
     Dosage: 2 IN 1 D
     Dates: start: 20091117, end: 20091117
  3. CARDIOLITE [Suspect]
     Indication: CORONARY ARTERY DISEASE
     Dosage: 2 IN 1 D
     Dates: start: 20091117, end: 20091117
  4. NEXIUM [Concomitant]
  5. ATONEL (RISEDRONATE SODIUM) [Concomitant]

REACTIONS (8)
  - ASTHMA EXERCISE INDUCED [None]
  - BLOOD PRESSURE SYSTOLIC INCREASED [None]
  - CARDIAC ASTHMA [None]
  - CHOKING SENSATION [None]
  - DRUG HYPERSENSITIVITY [None]
  - HEART RATE INCREASED [None]
  - RASH ERYTHEMATOUS [None]
  - URTICARIA [None]
